FAERS Safety Report 19680295 (Version 1)
Quarter: 2021Q3

REPORT INFORMATION
  Report Type: Spontaneous
  Country: US (occurrence: US)
  Receive Date: 20210810
  Receipt Date: 20210810
  Transmission Date: 20211014
  Serious: Yes (Life-Threatening, Hospitalization, Disabling)
  Sender: FDA-Public Use
  Company Number: None

PATIENT
  Age: 82 Year
  Sex: Male
  Weight: 92.25 kg

DRUGS (5)
  1. VITAMINS FOR SENIORS [Concomitant]
  2. CENTRUM SILVER [Concomitant]
     Active Substance: MINERALS\VITAMINS
  3. ROSUVASTATIN CALCIUM. [Concomitant]
     Active Substance: ROSUVASTATIN CALCIUM
  4. VALSARTAN. [Suspect]
     Active Substance: VALSARTAN
     Indication: HYPERTENSION
     Dosage: ?          QUANTITY:1 TABLET(S);?
     Route: 048
     Dates: start: 20130228, end: 20200218
  5. AMLODIPINE [Concomitant]
     Active Substance: AMLODIPINE BESYLATE

REACTIONS (9)
  - Gallbladder disorder [None]
  - Sprue-like enteropathy [None]
  - Dehydration [None]
  - Duodenal polyp [None]
  - Escherichia sepsis [None]
  - Blood pressure increased [None]
  - Anal incontinence [None]
  - Gastrointestinal infection [None]
  - Intestinal villi atrophy [None]

NARRATIVE: CASE EVENT DATE: 20181111
